FAERS Safety Report 23758668 (Version 1)
Quarter: 2024Q2

REPORT INFORMATION
  Report Type: Other
  Country: US (occurrence: None)
  Receive Date: 20240418
  Receipt Date: 20240418
  Transmission Date: 20240716
  Serious: No
  Sender: FDA-Public Use
  Company Number: US-ROCHE-3450533

PATIENT
  Age: 72 Year
  Sex: Female

DRUGS (6)
  1. BEVACIZUMAB [Suspect]
     Active Substance: BEVACIZUMAB
     Indication: Adenocarcinoma of colon
     Route: 065
     Dates: start: 202101
  2. TIPIRACIL HYDROCHLORIDE\TRIFLURIDINE [Suspect]
     Active Substance: TIPIRACIL HYDROCHLORIDE\TRIFLURIDINE
     Indication: Adenocarcinoma of colon
     Route: 065
     Dates: start: 202101
  3. REGORAFENIB [Concomitant]
     Active Substance: REGORAFENIB
     Dates: start: 202112
  4. OSIMERTINIB [Concomitant]
     Active Substance: OSIMERTINIB
     Dates: start: 202202
  5. MINOCYCLINE [Concomitant]
     Active Substance: MINOCYCLINE HYDROCHLORIDE
     Route: 048
  6. APIXABAN [Concomitant]
     Active Substance: APIXABAN

REACTIONS (1)
  - Disease progression [Unknown]
